FAERS Safety Report 4605092-2 (Version None)
Quarter: 2005Q2

REPORT INFORMATION
  Report Type: 
  Country: None (occurrence: None)
  Receive Date: 20050217
  Receipt Date: 20041130
  Transmission Date: 20051028
  Serious: Yes (Other)
  Sender: FDA-Public Use
  Company Number: S04-USA-07669-01

PATIENT
  Age: 80 Year
  Sex: Male

DRUGS (15)
  1. NAMENDA [Suspect]
     Indication: DEMENTIA
     Dosage: 10 MG BID; PO
     Route: 048
     Dates: start: 20040101, end: 20040101
  2. NAMENDA [Suspect]
     Indication: DEMENTIA
     Dosage: 10 MG QD; PO
     Route: 048
     Dates: start: 20040101, end: 20041201
  3. NAMENDA [Suspect]
     Indication: DEMENTIA
     Dosage: 5 MG QD; PO
     Route: 048
     Dates: start: 20040101, end: 20040101
  4. NAMENDA [Suspect]
     Indication: DEMENTIA
     Dosage: 5 MG BID; PO
     Route: 048
     Dates: start: 20040101, end: 20040101
  5. NAMENDA [Suspect]
     Indication: DEMENTIA
     Dosage: 15 MG QD; PO
     Route: 048
     Dates: start: 20040101, end: 20040101
  6. ARICEPT [Concomitant]
  7. CARBIDOPA AND LEVODOPA [Concomitant]
  8. SEROFQUEL (QUETIAPINE FUMARATE) [Concomitant]
  9. CEPHALEXIN [Concomitant]
  10. ASPIRIN [Concomitant]
  11. IBUPROFEN [Concomitant]
  12. GINGO BILOBA [Concomitant]
  13. VITAMIN E [Concomitant]
  14. VITAMIN B COMPLEX CAP [Concomitant]
  15. MULTI-VITAMIN [Concomitant]

REACTIONS (2)
  - CONVULSION [None]
  - LETHARGY [None]
